FAERS Safety Report 5076557-7 (Version None)
Quarter: 2006Q3

REPORT INFORMATION
  Report Type: 
  Country: None (occurrence: None)
  Receive Date: 20060810
  Receipt Date: 20060519
  Transmission Date: 20061208
  Serious: Yes (Hospitalization, Other)
  Sender: FDA-Public Use
  Company Number: US-AMGEN-STX180327

PATIENT
  Sex: Female

DRUGS (5)
  1. ENBREL [Suspect]
     Indication: RHEUMATOID ARTHRITIS
     Route: 058
     Dates: start: 20020102
  2. METHOTREXATE [Concomitant]
     Route: 048
  3. VALIUM [Concomitant]
  4. PROZAC [Concomitant]
  5. OSCAL [Concomitant]

REACTIONS (4)
  - BRONCHITIS [None]
  - DYSFUNCTIONAL UTERINE BLEEDING [None]
  - PERTUSSIS [None]
  - PLEURISY [None]
